FAERS Safety Report 17309264 (Version 1)
Quarter: 2020Q1

REPORT INFORMATION
  Report Type: Spontaneous
  Country: US (occurrence: US)
  Receive Date: 20200123
  Receipt Date: 20200123
  Transmission Date: 20200409
  Serious: Yes (Other)
  Sender: FDA-Public Use
  Company Number: US-LANNETT COMPANY, INC.-US-2020LAN000019

PATIENT
  Sex: Male
  Weight: 124.72 kg

DRUGS (1)
  1. ZAROXOLYN [Suspect]
     Active Substance: METOLAZONE
     Indication: DIURETIC THERAPY
     Dosage: 5 MG, QD, ON MONDAY, WEDNESDAY, AND FRIDAY
     Route: 048

REACTIONS (2)
  - Seizure [Unknown]
  - Blood potassium decreased [Unknown]

NARRATIVE: CASE EVENT DATE: 2019
